FAERS Safety Report 5258744-8 (Version None)
Quarter: 2007Q1

REPORT INFORMATION
  Report Type: 
  Country: None (occurrence: None)
  Receive Date: 20070306
  Receipt Date: 20070306
  Transmission Date: 20070707
  Serious: No
  Sender: FDA-Public Use
  Company Number: None

PATIENT
  Age: 39 Year
  Sex: Male
  Weight: 87.5442 kg

DRUGS (1)
  1. PIPERACILLIN AND TAZOBACTAM [Suspect]
     Indication: WOUND INFECTION
     Dosage: 3.375G Q6H IV
     Route: 042
     Dates: start: 20061010, end: 20061030

REACTIONS (1)
  - RASH MACULAR [None]
